FAERS Safety Report 8422785-X (Version None)
Quarter: 2012Q2

REPORT INFORMATION
  Report Type: 
  Country: None (occurrence: None)
  Receive Date: 20120521
  Receipt Date: 20120507
  Transmission Date: 20120825
  Serious: Yes (Other)
  Sender: FDA-Public Use
  Company Number: 2012032022

PATIENT
  Age: 47 Year
  Sex: Male

DRUGS (3)
  1. IMMUNE GLOBULIN (HUMAN) [Suspect]
     Indication: NEUROPATHY PERIPHERAL
     Dosage: 10 G QD, INTRAVENOUS (NOT OTHERWISE SPECIFID), 20 G QD, INTRAVENOUS (NOT OTHERWISE SPECIFIED)
     Route: 042
     Dates: start: 20120402, end: 20120406
  2. IMMUNE GLOBULIN (HUMAN) [Suspect]
     Indication: NEUROPATHY PERIPHERAL
     Dosage: 10 G QD, INTRAVENOUS (NOT OTHERWISE SPECIFID), 20 G QD, INTRAVENOUS (NOT OTHERWISE SPECIFIED)
     Route: 042
     Dates: start: 20120402, end: 20120406
  3. IMMUNE GLOBULIN (HUMAN) [Suspect]

REACTIONS (6)
  - ASTHENIA [None]
  - HEADACHE [None]
  - OFF LABEL USE [None]
  - OCULAR ICTERUS [None]
  - TACHYCARDIA [None]
  - HAEMOLYTIC ANAEMIA [None]
